FAERS Safety Report 7919809-2 (Version None)
Quarter: 2011Q4

REPORT INFORMATION
  Report Type: 
  Country: None (occurrence: None)
  Receive Date: 20111117
  Receipt Date: 20111117
  Transmission Date: 20120403
  Serious: Yes (Hospitalization)
  Sender: FDA-Public Use
  Company Number: None

PATIENT
  Age: 75 Year
  Sex: Female
  Weight: 62.142 kg

DRUGS (1)
  1. BONIVA [Suspect]
     Indication: OSTEOPOROSIS
     Dates: start: 20110126, end: 20111106

REACTIONS (6)
  - FEELING COLD [None]
  - TREMOR [None]
  - HEAD INJURY [None]
  - HEART RATE INCREASED [None]
  - FALL [None]
  - GAIT DISTURBANCE [None]
